FAERS Safety Report 11314186 (Version 2)
Quarter: 2015Q3

REPORT INFORMATION
  Report Type: Spontaneous
  Country: JP (occurrence: JP)
  Receive Date: 20150727
  Receipt Date: 20150901
  Transmission Date: 20151125
  Serious: Yes (Hospitalization)
  Sender: FDA-Public Use
  Company Number: JP-BAYER-2015-381183

PATIENT
  Age: 70 Year
  Sex: Female

DRUGS (3)
  1. BAYASPIRIN [Interacting]
     Active Substance: ASPIRIN
     Indication: THROMBOSIS PROPHYLAXIS
     Dosage: UNK
     Route: 048
  2. WARFARIN [Interacting]
     Active Substance: WARFARIN
     Route: 048
  3. BAYASPIRIN [Suspect]
     Active Substance: ASPIRIN
     Indication: THROMBOSIS PROPHYLAXIS
     Dosage: 100 MG, QD
     Route: 048
     Dates: end: 20140304

REACTIONS (3)
  - Labelled drug-drug interaction medication error [Recovered/Resolved]
  - Prothrombin level increased [Recovered/Resolved]
  - Extra dose administered [Recovered/Resolved]
